FAERS Safety Report 17727603 (Version 2)
Quarter: 2020Q4

REPORT INFORMATION
  Report Type: Spontaneous
  Country: US (occurrence: US)
  Receive Date: 20200430
  Receipt Date: 20201001
  Transmission Date: 20210113
  Serious: Yes (Hospitalization, Congenital Anomaly, Other)
  Sender: FDA-Public Use
  Company Number: US-LUPIN PHARMACEUTICALS INC.-2020-01884

PATIENT
  Age: 4 Month
  Sex: Female

DRUGS (1)
  1. LEVONORGESTREL. [Suspect]
     Active Substance: LEVONORGESTREL
     Indication: PRODUCT USED FOR UNKNOWN INDICATION
     Dosage: UNK
     Route: 064

REACTIONS (5)
  - Perineal disorder [Unknown]
  - Persistent urogenital sinus [Recovering/Resolving]
  - Foetal exposure during pregnancy [Unknown]
  - Vulval disorder [Recovering/Resolving]
  - Virilism [Recovering/Resolving]
